FAERS Safety Report 16088239 (Version 1)
Quarter: 2019Q1

REPORT INFORMATION
  Report Type: Spontaneous
  Country: FR (occurrence: FR)
  Receive Date: 20190319
  Receipt Date: 20190319
  Transmission Date: 20190418
  Serious: Yes (Hospitalization)
  Sender: FDA-Public Use
  Company Number: FR-ROCHE-2286034

PATIENT
  Age: 67 Year
  Sex: Male

DRUGS (1)
  1. VEMURAFENIB. [Suspect]
     Active Substance: VEMURAFENIB
     Indication: COLITIS
     Route: 048
     Dates: start: 20181214, end: 20190120

REACTIONS (1)
  - Polyarthritis [Recovering/Resolving]
